FAERS Safety Report 15472095 (Version 3)
Quarter: 2018Q4

REPORT INFORMATION
  Report Type: Spontaneous
  Country: FR (occurrence: FR)
  Receive Date: 20181008
  Receipt Date: 20181017
  Transmission Date: 20190205
  Serious: Yes (Hospitalization)
  Sender: FDA-Public Use
  Company Number: FR-IPSEN BIOPHARMACEUTICALS, INC.-2018-15341

PATIENT
  Age: 30 Year
  Sex: Male
  Weight: 71 kg

DRUGS (2)
  1. DYSPORT [Suspect]
     Active Substance: ABOBOTULINUMTOXINA
     Indication: OFF LABEL USE
  2. DYSPORT [Suspect]
     Active Substance: ABOBOTULINUMTOXINA
     Indication: HEMIPLEGIA
     Route: 030
     Dates: start: 20180828, end: 20180828

REACTIONS (2)
  - Off label use [Unknown]
  - Idiopathic generalised epilepsy [Not Recovered/Not Resolved]

NARRATIVE: CASE EVENT DATE: 20180830
